FAERS Safety Report 5344491-0 (Version None)
Quarter: 2007Q2

REPORT INFORMATION
  Report Type: 
  Country: None (occurrence: None)
  Receive Date: 20070604
  Receipt Date: 20070522
  Transmission Date: 20071010
  Serious: Yes (Other)
  Sender: FDA-Public Use
  Company Number: IE-AMGEN-US226622

PATIENT
  Sex: Female

DRUGS (3)
  1. ENBREL [Suspect]
     Indication: PSORIASIS
     Route: 058
     Dates: start: 20070208
  2. DOVOBET [Concomitant]
     Indication: PSORIASIS
     Dosage: UNKNOWN
     Route: 061
  3. DOVONEX [Concomitant]
     Indication: PSORIASIS
     Dosage: UNKNOWN
     Route: 061

REACTIONS (2)
  - INJECTION SITE ERYTHEMA [None]
  - INJECTION SITE VESICLES [None]
